FAERS Safety Report 21332180 (Version 3)
Quarter: 2022Q4

REPORT INFORMATION
  Report Type: Spontaneous
  Country: CN (occurrence: CN)
  Receive Date: 20220914
  Receipt Date: 20221122
  Transmission Date: 20230112
  Serious: Yes (Other)
  Sender: FDA-Public Use
  Company Number: CN-BAYER-2022A127447

PATIENT
  Sex: Male

DRUGS (4)
  1. EYLEA [Suspect]
     Active Substance: AFLIBERCEPT
     Indication: Diabetic retinal oedema
     Dosage: UNK, ONCE (RIGHT EYE); SOLUTION FOR INJECTION; 40 MG/ML
     Route: 031
     Dates: start: 20220803, end: 20220803
  2. EYLEA [Suspect]
     Active Substance: AFLIBERCEPT
     Dosage: UNK, ONCE (LEFT EYE); SOLUTION FOR INJECTION; 40 MG/ML
     Route: 031
     Dates: start: 20220807, end: 20220807
  3. DEXAMETHASONE [Concomitant]
     Active Substance: DEXAMETHASONE
     Indication: Product used for unknown indication
     Dosage: UNK, ONCE (RIGHT EYE)
     Route: 031
     Dates: start: 20220803, end: 20220803
  4. DEXAMETHASONE [Concomitant]
     Active Substance: DEXAMETHASONE
     Dosage: UNK, ONCE (LEFT EYE)
     Route: 031
     Dates: start: 20220807, end: 20220807

REACTIONS (4)
  - Headache [Recovering/Resolving]
  - Dizziness [Recovering/Resolving]
  - Cerebral infarction [Recovering/Resolving]
  - Visual acuity reduced [Recovering/Resolving]

NARRATIVE: CASE EVENT DATE: 20220824
